FAERS Safety Report 14538382 (Version 2)
Quarter: 2020Q3

REPORT INFORMATION
  Report Type: Report from Study
  Country: CA (occurrence: CA)
  Receive Date: 20180216
  Receipt Date: 20200925
  Transmission Date: 20201102
  Serious: Yes (Hospitalization)
  Sender: FDA-Public Use
  Company Number: CA-ASTRAZENECA-2016SE99842

PATIENT
  Age: 53 Year
  Sex: Female

DRUGS (3)
  1. PREGABALIN. [Concomitant]
     Active Substance: PREGABALIN
     Route: 065
     Dates: start: 2007
  2. LITHIUM. [Concomitant]
     Active Substance: LITHIUM
     Route: 065
     Dates: start: 2007
  3. MEDI4736 [Suspect]
     Active Substance: DURVALUMAB
     Indication: NON-SMALL CELL LUNG CANCER
     Route: 042
     Dates: start: 20160817

REACTIONS (2)
  - Hyperthyroidism [Not Recovered/Not Resolved]
  - Anxiety [Recovered/Resolved]

NARRATIVE: CASE EVENT DATE: 20160914
